FAERS Safety Report 5488453-1 (Version None)
Quarter: 2007Q4

REPORT INFORMATION
  Report Type: 
  Country: None (occurrence: None)
  Receive Date: 20071017
  Receipt Date: 20071012
  Transmission Date: 20080405
  Serious: Yes (Hospitalization)
  Sender: FDA-Public Use
  Company Number: NL-ASTRAZENECA-2007AC01940

PATIENT
  Age: 23112 Day
  Sex: Female

DRUGS (10)
  1. LOSEC MUPS [Suspect]
     Route: 048
     Dates: start: 19981209
  2. SIMVASTATIN [Suspect]
     Dates: start: 20070321
  3. METFORMINE HCL [Concomitant]
  4. FUROSEMIDE [Concomitant]
  5. DIOVAN [Concomitant]
  6. BROMAZEPAM [Concomitant]
     Dates: start: 20070323
  7. TEMAZEPAM [Concomitant]
  8. TOBRADEX [Concomitant]
     Route: 047
  9. XALATAN [Concomitant]
     Route: 047
  10. ATROPINESULFAAT [Concomitant]
     Route: 047

REACTIONS (1)
  - RETINAL DETACHMENT [None]
